FAERS Safety Report 20687303 (Version 2)
Quarter: 2022Q2

REPORT INFORMATION
  Report Type: Report from Study
  Country: CA (occurrence: CA)
  Receive Date: 20220408
  Receipt Date: 20220428
  Transmission Date: 20220721
  Serious: Yes (Other)
  Sender: FDA-Public Use
  Company Number: CA-BEH-2022143876

PATIENT
  Age: 70 Year
  Sex: Female
  Weight: 76.2 kg

DRUGS (4)
  1. HIZENTRA [Suspect]
     Active Substance: HUMAN IMMUNOGLOBULIN G
     Indication: Primary immunodeficiency syndrome
     Dosage: 15 GRAM, BIW
     Route: 058
     Dates: start: 20171010
  2. HIZENTRA [Suspect]
     Active Substance: HUMAN IMMUNOGLOBULIN G
     Dosage: UNK
     Route: 058
     Dates: start: 20220331
  3. PREDNISONE [Suspect]
     Active Substance: PREDNISONE
     Indication: Product used for unknown indication
     Route: 065
  4. BIAXIN [Concomitant]
     Active Substance: CLARITHROMYCIN

REACTIONS (7)
  - Lung disorder [Not Recovered/Not Resolved]
  - Influenza [Unknown]
  - Asthenia [Unknown]
  - Impaired driving ability [Unknown]
  - Diarrhoea [Unknown]
  - Poor quality sleep [Unknown]
  - Influenza [Unknown]

NARRATIVE: CASE EVENT DATE: 20190101
